FAERS Safety Report 17120451 (Version 1)
Quarter: 2019Q4

REPORT INFORMATION
  Report Type: Spontaneous
  Country: JP (occurrence: JP)
  Receive Date: 20191206
  Receipt Date: 20191206
  Transmission Date: 20200122
  Serious: Yes (Life-Threatening, Other)
  Sender: FDA-Public Use
  Company Number: JP-ACCORD-164392

PATIENT
  Age: 64 Year
  Sex: Female

DRUGS (2)
  1. CARBOPLATIN. [Suspect]
     Active Substance: CARBOPLATIN
     Indication: SQUAMOUS CELL CARCINOMA OF THE VULVA
  2. EPIRUBICIN [Suspect]
     Active Substance: EPIRUBICIN
     Indication: SQUAMOUS CELL CARCINOMA OF THE VULVA

REACTIONS (2)
  - Neutropenia [Unknown]
  - Haematotoxicity [Unknown]
